FAERS Safety Report 11745433 (Version 1)
Quarter: 2015Q4

REPORT INFORMATION
  Report Type: Spontaneous
  Country: US (occurrence: None)
  Receive Date: 20151116
  Receipt Date: 20151116
  Transmission Date: 20160304
  Serious: No
  Sender: FDA-Public Use
  Company Number: None

PATIENT
  Age: 60 Year
  Sex: Female

DRUGS (1)
  1. PROLIA [Suspect]
     Active Substance: DENOSUMAB
     Indication: OSTEOARTHRITIS
     Dosage: 60 MG, ONCE EVERY 6 MONTHS
     Route: 058
     Dates: start: 20150716, end: 20150722

REACTIONS (3)
  - Toothache [None]
  - Pain in jaw [None]
  - Bone pain [None]

NARRATIVE: CASE EVENT DATE: 20151030
